FAERS Safety Report 4495335-0 (Version None)
Quarter: 2004Q4

REPORT INFORMATION
  Report Type: 
  Country: None (occurrence: None)
  Receive Date: 20041103
  Receipt Date: 20041023
  Transmission Date: 20050328
  Serious: Yes (Other)
  Sender: FDA-Public Use
  Company Number: 2004072666

PATIENT
  Sex: Female
  Weight: 72.5755 kg

DRUGS (12)
  1. DILANTIN KAPSEAL [Suspect]
     Indication: CONVULSION
     Dosage: 400 MG , ORAL
     Route: 048
     Dates: start: 20000714
  2. PHENYTOIN [Suspect]
     Indication: CONVULSION
     Dosage: ORAL
     Route: 048
  3. YEAST DRIED (YEAST DRIED) [Concomitant]
  4. YEAST (YEAST) [Concomitant]
  5. ALL OTHER THERAPAUTIC PRODUCTS (ALL OTHER THERAPEUTIC PRODUCTS) [Suspect]
  6. COD-LIVER OIL (COD-LIVER OIL) [Concomitant]
  7. TOCOPHEROL CONCENTRATE CAP [Concomitant]
  8. SELENIUM (SELENIUM) [Concomitant]
  9. MYRTILLUS (MYRTILLUS) [Concomitant]
  10. PYCNOGENOL (PHYCNOGENOL (PYCNOGENOL) [Concomitant]
  11. BROMELAINS (BROMELAINS0 [Concomitant]
  12. MULTIVITAMINS W/MINERALS (MINERALSNOS, VITAMINS NOS) [Concomitant]

REACTIONS (18)
  - ARTHRITIS [None]
  - CONCUSSION [None]
  - CONDITION AGGRAVATED [None]
  - CONTUSION [None]
  - CRYING [None]
  - DEPRESSION [None]
  - DISORIENTATION [None]
  - DIZZINESS [None]
  - EATING DISORDER [None]
  - FALL [None]
  - GRAND MAL CONVULSION [None]
  - INJURY [None]
  - MENTAL DISORDER [None]
  - OSTEOPOROSIS [None]
  - OTITIS MEDIA [None]
  - PETIT MAL EPILEPSY [None]
  - TENDONITIS [None]
  - THINKING ABNORMAL [None]
